FAERS Safety Report 6649761-1 (Version None)
Quarter: 2010Q1

REPORT INFORMATION
  Report Type: 
  Country: None (occurrence: None)
  Receive Date: 20100324
  Receipt Date: 20100324
  Transmission Date: 20100710
  Serious: Yes (Other)
  Sender: FDA-Public Use
  Company Number: None

PATIENT
  Age: 65 Year
  Sex: Female
  Weight: 77.1115 kg

DRUGS (1)
  1. LISINOPRIL [Suspect]
     Indication: BLOOD PRESSURE MANAGEMENT
     Dosage: ABOUT THREE MONTHS

REACTIONS (3)
  - CARDIAC FAILURE CONGESTIVE [None]
  - COUGH [None]
  - INCREASED UPPER AIRWAY SECRETION [None]
